FAERS Safety Report 23952722 (Version 3)
Quarter: 2024Q3

REPORT INFORMATION
  Report Type: Report from Study
  Country: US (occurrence: US)
  Receive Date: 20240607
  Receipt Date: 20240730
  Transmission Date: 20241017
  Serious: Yes (Other)
  Sender: PFIZER
  Company Number: US-PFIZER INC-202400188017

PATIENT
  Age: 64 Year
  Sex: Female

DRUGS (4)
  1. TUKYSA [Suspect]
     Active Substance: TUCATINIB
     Dosage: 250 MG, 2X/DAY
     Route: 048
     Dates: start: 20240410
  2. TUKYSA [Suspect]
     Active Substance: TUCATINIB
     Dosage: 250 MG, 2X/DAY
     Dates: start: 20240410, end: 202405
  3. TUKYSA [Suspect]
     Active Substance: TUCATINIB
     Dosage: 200 MG, 2X/DAY
     Route: 048
  4. CAPECITABINE [Suspect]
     Active Substance: CAPECITABINE
     Dosage: UNK
     Dates: start: 202405

REACTIONS (2)
  - Neuropathy peripheral [Recovering/Resolving]
  - Product dose omission in error [Unknown]
